FAERS Safety Report 7305897-3 (Version None)
Quarter: 2011Q1

REPORT INFORMATION
  Report Type: 
  Country: None (occurrence: None)
  Receive Date: 20110222
  Receipt Date: 20110211
  Transmission Date: 20110831
  Serious: Yes (Other)
  Sender: FDA-Public Use
  Company Number: CA-JNJFOC-20110204623

PATIENT
  Sex: Male
  Weight: 73 kg

DRUGS (4)
  1. REMICADE [Suspect]
     Indication: CROHN'S DISEASE
     Route: 042
  2. IRON [Concomitant]
  3. IMURAN [Concomitant]
  4. REMICADE [Suspect]
     Route: 042

REACTIONS (1)
  - ABDOMINAL WALL MASS [None]
